FAERS Safety Report 7384269-X (Version None)
Quarter: 2011Q1

REPORT INFORMATION
  Report Type: 
  Country: None (occurrence: None)
  Receive Date: 20110330
  Receipt Date: 20110324
  Transmission Date: 20110831
  Serious: Yes (Hospitalization)
  Sender: FDA-Public Use
  Company Number: US-MERCK-1102USA01922

PATIENT
  Age: 64 Year
  Sex: Male

DRUGS (7)
  1. VERAPAMIL [Suspect]
     Route: 048
  2. PREDNISONE [Suspect]
     Route: 048
  3. LEVOTHYROXINE SODIUM [Suspect]
     Route: 048
  4. VYTORIN [Suspect]
     Route: 048
  5. FENOFIBRATE [Suspect]
     Route: 048
  6. LEUPROLIDE ACETATE [Suspect]
     Route: 030
  7. KETOCONAZOLE [Suspect]
     Route: 048

REACTIONS (3)
  - DRUG INTERACTION [None]
  - RHABDOMYOLYSIS [None]
  - RENAL FAILURE ACUTE [None]
